FAERS Safety Report 4554365-0 (Version None)
Quarter: 2004Q4

REPORT INFORMATION
  Report Type: 
  Country: None (occurrence: None)
  Receive Date: 20041227
  Receipt Date: 20041004
  Transmission Date: 20050328
  Serious: No
  Sender: FDA-Public Use
  Company Number: 04P-163-0275957-00

PATIENT
  Age: 60 Year
  Sex: Female
  Weight: 74.8435 kg

DRUGS (13)
  1. HUMIRA [Suspect]
     Indication: RHEUMATOID ARTHRITIS
     Dosage: 40 MG, 1 IN 2 WK, SUBCUTANEOUS
     Route: 058
     Dates: start: 20030501
  2. ROFECOXIB [Concomitant]
  3. SULFASALAZINE [Concomitant]
  4. HYDROXYCHLOROQUINE PHOSPHATE [Concomitant]
  5. GLUCOSAMINE SULFATE [Concomitant]
  6. RESERPINE [Concomitant]
  7. VERAPAMIL [Concomitant]
  8. HYDROCHLOROTHIAZIDE [Concomitant]
  9. TRIFOLIUM PRATENSE L. [Concomitant]
  10. FOLIC ACID [Concomitant]
  11. CALCIUM WITH VITAMIN D [Concomitant]
  12. CENTRUM VITAMINS [Concomitant]
  13. TOCOPHEROL CONCENTRATE CAP [Concomitant]

REACTIONS (1)
  - CARDIAC MURMUR [None]
